FAERS Safety Report 8938421 (Version 1)
Quarter: 2012Q4

REPORT INFORMATION
  Report Type: Spontaneous
  Country: US (occurrence: None)
  Receive Date: 20121128
  Receipt Date: 20121128
  Transmission Date: 20130627
  Serious: Yes (Hospitalization)
  Sender: FDA-Public Use
  Company Number: None

PATIENT
  Age: 80 Year
  Sex: Male
  Weight: 68 kg

DRUGS (11)
  1. PLAVIX [Suspect]
     Indication: ATRIAL FIBRILLATION
     Dosage: CHRONIC
75MG DAILY PO
     Route: 048
  2. PRADAXA [Suspect]
     Indication: ATRIAL FIBRILLATION
     Dosage: CHRONIC
150MG  BID  PO
     Route: 048
  3. CELEBREX [Suspect]
     Indication: ARTHRITIS
     Dosage: 200MG PO BID
     Route: 048
  4. DIGOXIN [Suspect]
     Indication: ISCHEMIC CARDIOMYOPATHY
     Dosage: 0.25MG PO BID
     Route: 048
  5. TYLENOL [Concomitant]
  6. LISINOPRIL [Concomitant]
  7. LASIX [Concomitant]
  8. GLIPIZIDE [Concomitant]
  9. ZOCOR [Concomitant]
  10. GABAPENTIN [Concomitant]
  11. COREG [Concomitant]

REACTIONS (6)
  - Gastrointestinal haemorrhage [None]
  - International normalised ratio increased [None]
  - Blood urea increased [None]
  - Large intestine polyp [None]
  - Colitis [None]
  - Cardioactive drug level increased [None]
